FAERS Safety Report 12907193 (Version 1)
Quarter: 2016Q4

REPORT INFORMATION
  Report Type: Spontaneous
  Country: US (occurrence: US)
  Receive Date: 20161103
  Receipt Date: 20161103
  Transmission Date: 20170207
  Serious: No
  Sender: FDA-Public Use
  Company Number: US-009507513-1610USA005926

PATIENT
  Age: 19 Year
  Sex: Female

DRUGS (1)
  1. NEXPLANON [Suspect]
     Active Substance: ETONOGESTREL
     Indication: CONTRACEPTION
     Dosage: FOR 3 YEARS
     Route: 059
     Dates: start: 20150420

REACTIONS (4)
  - Asthenia [Unknown]
  - Somnolence [Unknown]
  - Mood altered [Unknown]
  - Headache [Unknown]

NARRATIVE: CASE EVENT DATE: 201608
